FAERS Safety Report 5422382-4 (Version None)
Quarter: 2007Q3

REPORT INFORMATION
  Report Type: 
  Country: None (occurrence: None)
  Receive Date: 20070822
  Receipt Date: 20070814
  Transmission Date: 20080115
  Serious: Yes (Hospitalization, Disabling)
  Sender: FDA-Public Use
  Company Number: A0666906A

PATIENT
  Age: 55 Year
  Sex: Male

DRUGS (2)
  1. AVANDIA [Suspect]
     Route: 048
     Dates: start: 19930101
  2. NO CONCURRENT MEDICATION [Concomitant]

REACTIONS (2)
  - DISABILITY [None]
  - MYOCARDIAL INFARCTION [None]
